FAERS Safety Report 23023004 (Version 1)
Quarter: 2023Q4

REPORT INFORMATION
  Report Type: Spontaneous
  Country: US (occurrence: US)
  Receive Date: 20231003
  Receipt Date: 20231003
  Transmission Date: 20240109
  Serious: Yes (Death, Hospitalization, Other)
  Sender: FDA-Public Use
  Company Number: US-NORTHSTAR RX LLC-US-2023NSR000337

PATIENT
  Age: 84 Year
  Sex: Female

DRUGS (1)
  1. BACLOFEN [Suspect]
     Active Substance: BACLOFEN
     Indication: Neck pain
     Dosage: 20 MILLIGRAM, BID
     Route: 065

REACTIONS (2)
  - Pneumonia aspiration [Fatal]
  - Toxicity to various agents [Recovering/Resolving]
